FAERS Safety Report 5571445-1 (Version None)
Quarter: 2007Q4

REPORT INFORMATION
  Report Type: 
  Country: None (occurrence: None)
  Receive Date: 20071221
  Receipt Date: 20071212
  Transmission Date: 20080405
  Serious: Yes (Hospitalization)
  Sender: FDA-Public Use
  Company Number: DE-BRISTOL-MYERS SQUIBB COMPANY-13878160

PATIENT
  Age: 72 Year
  Sex: Female

DRUGS (4)
  1. CETUXIMAB [Suspect]
     Indication: NON-SMALL CELL LUNG CANCER
     Dosage: ABSOLUTE DAILY DOSE(656MG);INITIAL DOSE-400MG/M2.1 IN 1 WK.START DATE-08MAY07-ONGOING
     Route: 040
     Dates: start: 20070731, end: 20070731
  2. DOCETAXEL [Suspect]
     Indication: NON-SMALL CELL LUNG CANCER
     Dosage: FIRST INFUSION-19JUN07-ONGOING;ABSOLUTE DAILY DOSE-128MG;
     Route: 042
     Dates: start: 20070710, end: 20070710
  3. GEMCITABINE [Suspect]
     Indication: NON-SMALL CELL LUNG CANCER
     Dosage: FIRST INFUSION-08MAY07-ONGING;ABSOLUTE DAILY DOSE-1690MG
     Route: 042
     Dates: start: 20070609, end: 20070609
  4. BECLOMETHASONE DIPROPIONATE [Concomitant]
     Indication: CHRONIC OBSTRUCTIVE PULMONARY DISEASE
     Route: 055

REACTIONS (1)
  - TUBERCULOSIS [None]
